FAERS Safety Report 22280654 (Version 1)
Quarter: 2023Q2

REPORT INFORMATION
  Report Type: Spontaneous
  Country: US (occurrence: None)
  Receive Date: 20230502
  Receipt Date: 20230502
  Transmission Date: 20230722
  Serious: Yes (Hospitalization)
  Sender: FDA-Public Use
  Company Number: None

PATIENT
  Age: 46 Year
  Sex: Male
  Weight: 87.1 kg

DRUGS (3)
  1. STELARA [Suspect]
     Active Substance: USTEKINUMAB
     Indication: Psoriasis
     Dosage: OTHER FREQUENCY : EVERY THREE MONTH;?
     Route: 058
  2. vitamin D2 (50,000) units one time a week [Concomitant]
  3. Nabumetone 500 mg twice a day [Concomitant]

REACTIONS (5)
  - Visual impairment [None]
  - Optic neuritis [None]
  - Nervous system disorder [None]
  - Demyelinating polyneuropathy [None]
  - Gait disturbance [None]

NARRATIVE: CASE EVENT DATE: 20230420
